FAERS Safety Report 4949637-1 (Version None)
Quarter: 2006Q1

REPORT INFORMATION
  Report Type: 
  Country: None (occurrence: None)
  Receive Date: 20060316
  Receipt Date: 20060313
  Transmission Date: 20060701
  Serious: No
  Sender: FDA-Public Use
  Company Number: TAP2006Q00474

PATIENT
  Age: 50 Year
  Sex: Female

DRUGS (1)
  1. PREVACID [Suspect]
     Indication: GASTRIC ULCER
     Dosage: 30 MG, 2 IN 1 D, PER ORAL
     Route: 048
     Dates: start: 20040401

REACTIONS (1)
  - CORNEAL DEPOSITS [None]
